FAERS Safety Report 8882115 (Version 2)
Quarter: 2013Q1

REPORT INFORMATION
  Report Type: Report from Study
  Country: US (occurrence: US)
  Receive Date: 20121105
  Receipt Date: 20130122
  Transmission Date: 20140127
  Serious: Yes (Other)
  Sender: FDA-Public Use
  Company Number: US-JNJFOC-20121017613

PATIENT
  Sex: Female
  Weight: 59.88 kg

DRUGS (7)
  1. REMICADE [Suspect]
     Indication: COLITIS ULCERATIVE
     Route: 042
     Dates: end: 201208
  2. REMICADE [Suspect]
     Indication: COLITIS ULCERATIVE
     Route: 042
     Dates: end: 201206
  3. ASPIRIN [Concomitant]
     Route: 065
  4. 6MP [Concomitant]
     Route: 065
  5. PREDNISONE [Concomitant]
     Route: 065
  6. 5-ASA [Concomitant]
     Route: 065
  7. LIALDA [Concomitant]
     Indication: COLITIS ULCERATIVE
     Route: 065

REACTIONS (1)
  - Drug ineffective [Unknown]
